FAERS Safety Report 6657674-4 (Version None)
Quarter: 2010Q1

REPORT INFORMATION
  Report Type: 
  Country: None (occurrence: None)
  Receive Date: 20100330
  Receipt Date: 20100325
  Transmission Date: 20100710
  Serious: Yes (Other)
  Sender: FDA-Public Use
  Company Number: TR-BAYER-201020244GPV

PATIENT
  Age: 16 Year
  Sex: Male
  Weight: 77 kg

DRUGS (3)
  1. AVELOX [Suspect]
     Indication: PNEUMONIA
     Dosage: TOTAL DAILY DOSE: 400 MG  UNIT DOSE: 400 MG
     Route: 042
     Dates: start: 20091116, end: 20091122
  2. AVELOX [Suspect]
     Dosage: TOTAL DAILY DOSE: 400 MG  UNIT DOSE: 400 MG
     Route: 048
     Dates: start: 20091123, end: 20091129
  3. CLARITHROMYCIN [Concomitant]
     Indication: PNEUMONIA

REACTIONS (5)
  - ALBUMIN URINE PRESENT [None]
  - ALOPECIA [None]
  - HYPERTENSION [None]
  - RENAL FAILURE [None]
  - WEIGHT INCREASED [None]
